FAERS Safety Report 7827430-X (Version None)
Quarter: 2011Q4

REPORT INFORMATION
  Report Type: 
  Country: None (occurrence: None)
  Receive Date: 20111019
  Receipt Date: 20111019
  Transmission Date: 20120403
  Serious: Yes (Hospitalization)
  Sender: FDA-Public Use
  Company Number: None

PATIENT
  Sex: Male
  Weight: 53.2 kg

DRUGS (8)
  1. PREDNISONE [Suspect]
     Dosage: 720 MG
  2. CYTARABINE [Suspect]
     Dosage: 70 MG
  3. VINCRISTINE SULFATE [Suspect]
     Dosage: 8 MG
  4. PEG-L-ASPARAGINASE (K-H) [Suspect]
     Dosage: 11475 UNIT
  5. METHOTREXATE [Suspect]
     Dosage: 30 MG
  6. ZANTAC [Concomitant]
  7. DOXORUBICIN HCL [Suspect]
     Dosage: 92 MG
  8. BACTRIM [Concomitant]

REACTIONS (14)
  - PROCEDURAL PAIN [None]
  - ESCHERICHIA SEPSIS [None]
  - MENTAL STATUS CHANGES [None]
  - CATHETER SITE HAEMATOMA [None]
  - NEUTROPENIC SEPSIS [None]
  - RESPIRATORY DISTRESS [None]
  - EYE PAIN [None]
  - CHEST PAIN [None]
  - BACK PAIN [None]
  - BLOOD SODIUM DECREASED [None]
  - PULMONARY OEDEMA [None]
  - SEPTIC SHOCK [None]
  - PLEURAL EFFUSION [None]
  - BONE MARROW FAILURE [None]
